FAERS Safety Report 18779815 (Version 2)
Quarter: 2021Q1

REPORT INFORMATION
  Report Type: Spontaneous
  Country: GB (occurrence: GB)
  Receive Date: 20210125
  Receipt Date: 20210201
  Transmission Date: 20210419
  Serious: Yes (Hospitalization, Other)
  Sender: FDA-Public Use
  Company Number: GB-GILEAD-2021-0513018

PATIENT
  Age: 38 Year
  Sex: Female

DRUGS (5)
  1. RALTEGRAVIR. [Suspect]
     Active Substance: RALTEGRAVIR
     Dosage: 400 MG, BID
     Route: 048
     Dates: start: 201903
  2. EFAVIRENZ. [Concomitant]
     Active Substance: EFAVIRENZ
     Indication: HIV TEST
     Dosage: UNK
     Route: 048
  3. RALTEGRAVIR. [Suspect]
     Active Substance: RALTEGRAVIR
     Dosage: 1200 MG, QD
     Route: 048
     Dates: start: 201810, end: 201812
  4. TRUVADA [Suspect]
     Active Substance: EMTRICITABINE\TENOFOVIR DISOPROXIL FUMARATE
     Indication: HIV INFECTION
     Dosage: 200MG/245 MG, QD
     Route: 048
     Dates: start: 201609
  5. RALTEGRAVIR. [Suspect]
     Active Substance: RALTEGRAVIR
     Indication: HIV TEST
     Dosage: 400 MG, BID
     Route: 048
     Dates: start: 201609, end: 201810

REACTIONS (1)
  - Oesophageal ulcer [Not Recovered/Not Resolved]

NARRATIVE: CASE EVENT DATE: 201812
